FAERS Safety Report 4401376-1 (Version None)
Quarter: 2004Q3

REPORT INFORMATION
  Report Type: 
  Country: None (occurrence: None)
  Receive Date: 20040907
  Receipt Date: 20040401
  Transmission Date: 20050211
  Serious: No
  Sender: FDA-Public Use
  Company Number: US-BRISTOL-MYERS SQUIBB COMPANY-12548509

PATIENT
  Age: 88 Year
  Sex: Female
  Weight: 61 kg

DRUGS (5)
  1. COUMADIN [Suspect]
     Indication: BLOOD VISCOSITY INCREASED
     Dosage: 5 MG THREE TIMES A WEEK AND 2 1/2 GM FOUR TIMES A WEEK; DURATION: 4-5 MONTHS
     Route: 048
  2. TOPROL-XL [Concomitant]
  3. CARDIZEM [Concomitant]
  4. LIPITOR [Concomitant]
  5. WATER [Concomitant]

REACTIONS (1)
  - NAIL DISORDER [None]
